FAERS Safety Report 16199156 (Version 2)
Quarter: 2019Q2

REPORT INFORMATION
  Report Type: Spontaneous
  Country: US (occurrence: US)
  Receive Date: 20190415
  Receipt Date: 20190514
  Transmission Date: 20190711
  Serious: No
  Sender: FDA-Public Use
  Company Number: US-SHIRE-US201912321

PATIENT
  Age: 54 Year
  Sex: Female

DRUGS (1)
  1. NATPARA (PARATHYROID HORMONE) [Suspect]
     Active Substance: PARATHYROID HORMONE
     Indication: POST PROCEDURAL HYPOTHYROIDISM
     Dosage: 75 MICROGRAM, 1X/DAY:QD
     Route: 058
     Dates: start: 20180727

REACTIONS (3)
  - Feeling abnormal [Unknown]
  - Paraesthesia [Unknown]
  - Inappropriate schedule of product administration [Unknown]

NARRATIVE: CASE EVENT DATE: 20190410
